FAERS Safety Report 14514030 (Version 1)
Quarter: 2018Q1

REPORT INFORMATION
  Report Type: Spontaneous
  Country: US (occurrence: US)
  Receive Date: 20180208
  Receipt Date: 20180208
  Transmission Date: 20180509
  Serious: Yes (Other)
  Sender: FDA-Public Use
  Company Number: None

PATIENT
  Age: 62 Year
  Sex: Male
  Weight: 67.5 kg

DRUGS (1)
  1. LEVALBUTEROL TARTRATE HFA INHALATION AEROSOL [Suspect]
     Active Substance: LEVALBUTEROL TARTRATE
     Indication: BRONCHOSPASM
     Route: 055

REACTIONS (1)
  - Device physical property issue [None]

NARRATIVE: CASE EVENT DATE: 20180201
